FAERS Safety Report 6237581-1 (Version None)
Quarter: 2009Q2

REPORT INFORMATION
  Report Type: 
  Country: None (occurrence: None)
  Receive Date: 20090617
  Receipt Date: 20090608
  Transmission Date: 20091009
  Serious: Yes (Death, Hospitalization, Disabling)
  Sender: FDA-Public Use
  Company Number: SPV1-2009-00952

PATIENT
  Age: 30 Year
  Sex: Male
  Weight: 56.6 kg

DRUGS (10)
  1. ELAPRASE [Suspect]
     Indication: MUCOPOLYSACCHARIDOSIS II
     Dosage: O, UNK; 29 MG 1X/WEEK, IV DRIP
     Route: 042
     Dates: start: 20090205
  2. ZOFRAN /00955301/(ONDANSETRON) [Concomitant]
  3. ZOSYN [Concomitant]
  4. ZINC (ZINC) [Concomitant]
  5. VANCOMYCIN [Concomitant]
  6. NEXIUM [Concomitant]
  7. FENTANYL-100 [Concomitant]
  8. INSULIN (INSULIN) [Concomitant]
  9. HEPARIN [Concomitant]
  10. ATIVAN [Concomitant]

REACTIONS (4)
  - PNEUMONIA [None]
  - POST PROCEDURAL COMPLICATION [None]
  - RESPIRATORY FAILURE [None]
  - SPINAL DECOMPRESSION [None]
